FAERS Safety Report 26019054 (Version 1)
Quarter: 2025Q4

REPORT INFORMATION
  Report Type: Spontaneous
  Country: EU (occurrence: EU)
  Receive Date: 20251110
  Receipt Date: 20251110
  Transmission Date: 20260117
  Serious: Yes (Other)
  Sender: ALEXION PHARMACEUTICALS
  Company Number: None

PATIENT
  Age: 60 Year
  Sex: Male
  Weight: 78 kg

DRUGS (9)
  1. TICAGRELOR [Suspect]
     Active Substance: TICAGRELOR
     Indication: Acute coronary syndrome
     Dosage: 2 X PER DAG 1 STUK
     Dates: start: 20240403
  2. Amlodipine/Valsartan/HCT [Concomitant]
     Dosage: 12.5 MG
  3. ASPIRIN [Concomitant]
     Active Substance: ASPIRIN
     Dosage: TABLET, 80 MG (MILLIGRAM)
  4. EZETIMIBE [Concomitant]
     Active Substance: EZETIMIBE
     Dosage: TABLET, 10 MG (MILLIGRAM)
  5. LOSARTAN [Concomitant]
     Active Substance: LOSARTAN
     Dosage: FILMOMHULDE TABLET, 50 MG (MILLIGRAM)
  6. LANSOPRAZOLE [Concomitant]
     Active Substance: LANSOPRAZOLE
     Dosage: MAAGSAPRESISTENTE CAPSULE, 30 MG (MILLIGRAM)
  7. MEBEVERINE [Concomitant]
     Active Substance: MEBEVERINE
     Dosage: CAPSULE MET GEREGULEERDE AFGIFTE, 200 MG (MILLIGRAM)
  8. ALBUTEROL [Concomitant]
     Active Substance: ALBUTEROL
     Dosage: INHALATIEPOEDER, 200 ?G/DOSIS (MICROGRAM PER DOSIS)
  9. IPRATROPIUM [Concomitant]
     Active Substance: IPRATROPIUM
     Dosage: AEROSOL, 20 ?G/DOSIS (MICROGRAM PER DOSIS)

REACTIONS (4)
  - Anxiety [Recovered/Resolved]
  - Panic reaction [Recovered/Resolved]
  - Burnout syndrome [Recovered/Resolved]
  - Suspiciousness [Recovered/Resolved]
